FAERS Safety Report 21511337 (Version 1)
Quarter: 2022Q4

REPORT INFORMATION
  Report Type: Spontaneous
  Country: US (occurrence: US)
  Receive Date: 20221027
  Receipt Date: 20221027
  Transmission Date: 20230113
  Serious: Yes (Hospitalization, Disabling, Other)
  Sender: FDA-Public Use
  Company Number: US-AMGEN-USASP2022177941

PATIENT
  Age: 38 Year
  Sex: Male

DRUGS (5)
  1. MVASI [Suspect]
     Active Substance: BEVACIZUMAB-AWWB
     Indication: Central nervous system necrosis
     Dosage: UNK, Q2WK
     Route: 065
     Dates: start: 20220914
  2. IRESSA [Concomitant]
     Active Substance: GEFITINIB
  3. TEMODAR [Concomitant]
     Active Substance: TEMOZOLOMIDE
     Dosage: UNK
     Dates: start: 2015
  4. KEPPRA [Concomitant]
     Active Substance: LEVETIRACETAM
     Dosage: UNK
  5. AMOXICILLIN [Concomitant]
     Active Substance: AMOXICILLIN
     Indication: Wound
     Dosage: UNK

REACTIONS (3)
  - Meningitis [Not Recovered/Not Resolved]
  - Cognitive disorder [Not Recovered/Not Resolved]
  - Motor dysfunction [Not Recovered/Not Resolved]

NARRATIVE: CASE EVENT DATE: 20220901
